FAERS Safety Report 20581722 (Version 3)
Quarter: 2023Q2

REPORT INFORMATION
  Report Type: Spontaneous
  Country: JP (occurrence: JP)
  Receive Date: 20220311
  Receipt Date: 20230512
  Transmission Date: 20230722
  Serious: Yes (Hospitalization)
  Sender: FDA-Public Use
  Company Number: JP-ViiV Healthcare Limited-JP2022JPN042761

PATIENT

DRUGS (1)
  1. DOVATO [Suspect]
     Active Substance: DOLUTEGRAVIR SODIUM\LAMIVUDINE
     Indication: HIV infection
     Dosage: 1 DF, QD

REACTIONS (1)
  - COVID-19 [Recovered/Resolved]
